FAERS Safety Report 12196642 (Version 1)
Quarter: 2016Q1

REPORT INFORMATION
  Report Type: Spontaneous
  Country: US (occurrence: US)
  Receive Date: 20160321
  Receipt Date: 20160321
  Transmission Date: 20160526
  Serious: Yes (Other)
  Sender: FDA-Public Use
  Company Number: US-MYLANLABS-2016M1011078

PATIENT

DRUGS (1)
  1. BUDESONIDE CAPSULES [Suspect]
     Active Substance: BUDESONIDE
     Indication: COLITIS MICROSCOPIC
     Dosage: 9 MG, QD
     Route: 048
     Dates: start: 2016

REACTIONS (1)
  - Drug ineffective [Not Recovered/Not Resolved]

NARRATIVE: CASE EVENT DATE: 2016
